FAERS Safety Report 9639947 (Version 1)
Quarter: 2013Q4

REPORT INFORMATION
  Report Type: Spontaneous
  Country: CA (occurrence: CA)
  Receive Date: 20131023
  Receipt Date: 20131023
  Transmission Date: 20140711
  Serious: Yes (Other)
  Sender: FDA-Public Use
  Company Number: CA-VERTEX PHARMACEUTICALS INC-2013-010549

PATIENT
  Age: 56 Year
  Sex: Male

DRUGS (3)
  1. INCIVEK [Suspect]
     Indication: HEPATITIS C
     Dosage: 750 MG, TID
  2. RIBAVIRIN [Suspect]
     Dosage: 600 MG, BID
  3. PEGASYS [Suspect]
     Dosage: 180 ?G, QW

REACTIONS (2)
  - Injection site reaction [Unknown]
  - Rash [Unknown]
